FAERS Safety Report 6425950-6 (Version None)
Quarter: 2009Q4

REPORT INFORMATION
  Report Type: 
  Country: None (occurrence: None)
  Receive Date: 20091103
  Receipt Date: 20091103
  Transmission Date: 20100525
  Serious: Yes (Hospitalization)
  Sender: FDA-Public Use
  Company Number: None

PATIENT
  Age: 65 Year
  Sex: Male

DRUGS (1)
  1. ATENOLOL [Suspect]
     Dosage: 50 MG EVERY DAY PO
     Route: 048
     Dates: start: 20080801

REACTIONS (2)
  - BRADYCARDIA [None]
  - FALL [None]
